FAERS Safety Report 8818398 (Version 1)
Quarter: 2012Q4

REPORT INFORMATION
  Report Type: 
  Country: JP (occurrence: JP)
  Receive Date: 20121001
  Receipt Date: 20121001
  Transmission Date: 20130627
  Serious: Yes (Other)
  Sender: FDA-Public Use
  Company Number: JP-ROCHE-1100037

PATIENT
  Age: 64 Year
  Sex: Female
  Weight: 68 kg

DRUGS (5)
  1. TAMIFLU [Suspect]
     Indication: INFLUENZA
     Route: 048
     Dates: start: 20110128, end: 20110201
  2. HERBESSER R [Concomitant]
     Route: 048
     Dates: start: 20060218
  3. MICARDIS [Concomitant]
     Route: 048
     Dates: start: 20060215
  4. PARIET [Concomitant]
     Route: 065
     Dates: start: 20100215
  5. GASMOTIN [Concomitant]
     Route: 048
     Dates: start: 20100215

REACTIONS (6)
  - Retinal haemorrhage [Recovered/Resolved with Sequelae]
  - Visual impairment [Unknown]
  - Eye pain [Unknown]
  - Conjunctivitis [Recovered/Resolved with Sequelae]
  - Diarrhoea [Unknown]
  - Cataract [Unknown]
